FAERS Safety Report 17233821 (Version 1)
Quarter: 2020Q1

REPORT INFORMATION
  Report Type: Spontaneous
  Country: US (occurrence: US)
  Receive Date: 20200106
  Receipt Date: 20200106
  Transmission Date: 20200409
  Serious: Yes (Other)
  Sender: FDA-Public Use
  Company Number: US-TEVA-2020-US-1163749

PATIENT
  Sex: Male

DRUGS (1)
  1. TADALAFIL TABLETS, USP. [Suspect]
     Active Substance: TADALAFIL
     Route: 048

REACTIONS (3)
  - Hypertension [Not Recovered/Not Resolved]
  - Back pain [Unknown]
  - Wrong technique in product usage process [Unknown]
